FAERS Safety Report 8904346 (Version 1)
Quarter: 2012Q4

REPORT INFORMATION
  Report Type: 
  Country: US (occurrence: US)
  Receive Date: 20121113
  Receipt Date: 20121113
  Transmission Date: 20130627
  Serious: Yes (Other)
  Sender: FDA-Public Use
  Company Number: US-BAYER-2012-118589

PATIENT
  Sex: Female

DRUGS (2)
  1. ALKA-SELTZER PLUS NIGHT COLD MEDICINE [Suspect]
     Indication: COMMON COLD
  2. ALKA-SELTZER PLUS COLD AND COUGH [Suspect]
     Indication: COMMON COLD
     Dosage: bottle count 20s

REACTIONS (5)
  - Somnolence [None]
  - Feeling abnormal [None]
  - Unevaluable event [None]
  - Drug ineffective [None]
  - Product quality issue [None]
